FAERS Safety Report 5042473-X (Version None)
Quarter: 2006Q2

REPORT INFORMATION
  Report Type: 
  Country: None (occurrence: None)
  Receive Date: 20060627
  Receipt Date: 20060613
  Transmission Date: 20061013
  Serious: Yes (Hospitalization, Other)
  Sender: FDA-Public Use
  Company Number: GBWYE874001AUG05

PATIENT
  Sex: Female

DRUGS (2)
  1. EFFEXOR [Suspect]
     Indication: DEPRESSION
     Dosage: 150 MG 1X PER 1 DAY, TRANSPLACENTAL
     Route: 064
  2. ERYTHROMYCIN [Concomitant]

REACTIONS (8)
  - AGITATION NEONATAL [None]
  - BLOOD GLUCOSE DECREASED [None]
  - DRUG EXPOSURE DURING PREGNANCY [None]
  - DRUG WITHDRAWAL SYNDROME NEONATAL [None]
  - FEEDING DISORDER OF INFANCY OR EARLY CHILDHOOD [None]
  - IRRITABILITY [None]
  - PREMATURE BABY [None]
  - ULTRASOUND SKULL ABNORMAL [None]
